FAERS Safety Report 8935229 (Version 2)
Quarter: 2013Q1

REPORT INFORMATION
  Report Type: Spontaneous
  Country: US (occurrence: US)
  Receive Date: 20121129
  Receipt Date: 20130130
  Transmission Date: 20140127
  Serious: Yes (Death, Life-Threatening, Hospitalization)
  Sender: FDA-Public Use
  Company Number: US-INCYTE CORPORATION-2012IN002427

PATIENT
  Age: 77 Year
  Sex: Male

DRUGS (12)
  1. JAKAFI [Suspect]
     Indication: MYELOFIBROSIS
     Dosage: 10 MG, BID
     Route: 048
  2. JAKAFI [Suspect]
     Dosage: 15 MG, BID
     Route: 048
     Dates: end: 201211
  3. PROGRAF [Concomitant]
     Indication: PROPHYLAXIS AGAINST TRANSPLANT REJECTION
     Dosage: NOT SPECIFIED
  4. PROGRAF [Concomitant]
     Dosage: 0.5 MG, QD
  5. ACTONEL [Concomitant]
     Dosage: 35 MG, QW
  6. ASPIRIN [Concomitant]
     Dosage: 81 MG, QD
  7. ATIVAN [Concomitant]
     Dosage: UNK, PRN
  8. CALCIUM [Concomitant]
     Dosage: 500 MG, BID
  9. MAGNESIUM OXIDE [Concomitant]
     Indication: HYPOMAGNESAEMIA
     Dosage: 600 MG, BID
  10. MULTIVITAMIN [Concomitant]
  11. PRILOSEC [Concomitant]
     Dosage: 20 (UNITS NOT PROVIDED), QD
  12. VITAMIN D NOS [Concomitant]
     Dosage: 1000 UT, QD

REACTIONS (7)
  - Scedosporium infection [Fatal]
  - Cerebral haemorrhage [Fatal]
  - Presyncope [Unknown]
  - Pyrexia [Unknown]
  - Mental status changes [Unknown]
  - Obstructive airways disorder [Unknown]
  - Blood alkaline phosphatase increased [Unknown]
